FAERS Safety Report 8279793-1 (Version None)
Quarter: 2012Q2

REPORT INFORMATION
  Report Type: 
  Country: None (occurrence: None)
  Receive Date: 20120412
  Receipt Date: 20110802
  Transmission Date: 20120825
  Serious: No
  Sender: FDA-Public Use
  Company Number: US-ASTRAZENECA-2008UW28530

PATIENT
  Age: 46 Year
  Sex: Female
  Weight: 113.9 kg

DRUGS (25)
  1. NEXIUM [Suspect]
     Indication: PEPTIC ULCER
     Route: 048
  2. TOPAMAX [Concomitant]
     Indication: MIGRAINE
     Route: 048
  3. VALIUM [Concomitant]
     Dosage: PRN
     Route: 048
  4. NORCO [Concomitant]
     Indication: MUSCULOSKELETAL DISCOMFORT
     Dosage: 7.5 / 50 PRN
  5. NEXIUM [Suspect]
     Indication: GASTROOESOPHAGEAL REFLUX DISEASE
     Route: 048
  6. SEROQUEL [Suspect]
     Indication: BIPOLAR DISORDER
     Route: 048
     Dates: start: 20060512
  7. SEROQUEL [Suspect]
     Indication: SUICIDE ATTEMPT
     Route: 048
     Dates: start: 20060512
  8. TOPAMAX [Concomitant]
     Route: 048
  9. SOMA [Concomitant]
     Indication: BACK DISORDER
     Route: 048
  10. EXCEDRIN (MIGRAINE) [Concomitant]
     Indication: TENSION
     Dosage: PRN
     Route: 048
  11. EXCEDRIN (MIGRAINE) [Concomitant]
     Indication: HEADACHE
     Dosage: PRN
     Route: 048
  12. LORTAB [Concomitant]
     Dosage: PRN
     Route: 048
  13. SOMA [Concomitant]
     Indication: MUSCULOSKELETAL DISCOMFORT
     Route: 048
  14. ZIPSOR [Concomitant]
     Indication: PAIN
     Route: 048
  15. SAVELLA [Concomitant]
     Route: 048
  16. LEVOTHYROXINE SODIUM [Concomitant]
     Indication: THYROID DISORDER
  17. SEROQUEL [Suspect]
     Indication: SLEEP DISORDER
     Route: 048
     Dates: start: 20060512
  18. WELLBUTRIN [Concomitant]
     Route: 048
  19. TOPAMAX [Concomitant]
     Route: 048
  20. ZIPSOR [Concomitant]
     Indication: INFLAMMATION
     Route: 048
  21. TOVIAZ [Concomitant]
  22. SAVELLA [Concomitant]
     Indication: FIBROMYALGIA
     Route: 048
  23. VALIUM [Concomitant]
     Route: 048
  24. IMITREX [Concomitant]
     Indication: MIGRAINE
     Route: 048
  25. NORCO [Concomitant]
     Indication: BACK DISORDER
     Dosage: 7.5 / 50 PRN

REACTIONS (13)
  - WEIGHT INCREASED [None]
  - DRUG DOSE OMISSION [None]
  - URINARY INCONTINENCE [None]
  - BLADDER DISORDER [None]
  - APPENDIX DISORDER [None]
  - BREAST DISCHARGE [None]
  - MALAISE [None]
  - ADVERSE EVENT [None]
  - BLADDER DILATATION [None]
  - BREAST DISORDER [None]
  - BREAST MASS [None]
  - NAUSEA [None]
  - MIGRAINE [None]
